FAERS Safety Report 12618571 (Version 4)
Quarter: 2017Q1

REPORT INFORMATION
  Report Type: Spontaneous
  Country: US (occurrence: US)
  Receive Date: 20160803
  Receipt Date: 20170222
  Transmission Date: 20170428
  Serious: Yes (Hospitalization)
  Sender: FDA-Public Use
  Company Number: US-AMGEN-USASP2016097350

PATIENT
  Age: 62 Year
  Sex: Female
  Weight: 70.31 kg

DRUGS (6)
  1. XELJANZ [Suspect]
     Active Substance: TOFACITINIB CITRATE
     Indication: RHEUMATOID ARTHRITIS
     Dosage: 5 MG, BID
     Route: 065
  2. XELJANZ [Suspect]
     Active Substance: TOFACITINIB CITRATE
     Dosage: 11 MG, ONE EVERY MORNING
     Route: 048
     Dates: start: 20160608
  3. CORTISONE [Concomitant]
     Active Substance: CORTISONE\HYDROCORTISONE
     Dosage: UNK
     Route: 065
  4. LATANOPROST. [Concomitant]
     Active Substance: LATANOPROST
     Dosage: UNK
  5. ENBREL [Suspect]
     Active Substance: ETANERCEPT
     Indication: RHEUMATOID ARTHRITIS
     Dosage: 25 MG, INJECTION IN EVERY 3 DAYS
     Route: 065
     Dates: start: 201607, end: 201607
  6. METHOTREXATE. [Suspect]
     Active Substance: METHOTREXATE
     Indication: RHEUMATOID ARTHRITIS
     Dosage: 2.5 MG, 6 TABLETS EVERY WEEK
     Route: 048
     Dates: start: 201607

REACTIONS (20)
  - Pyrexia [Not Recovered/Not Resolved]
  - Haematocrit decreased [Unknown]
  - Feeling abnormal [Unknown]
  - Headache [Unknown]
  - Blood sodium decreased [Unknown]
  - Blood glucose increased [Unknown]
  - Adverse drug reaction [Unknown]
  - Haemoglobin decreased [Unknown]
  - Pain [Unknown]
  - Blood triglycerides decreased [Unknown]
  - Laboratory test abnormal [Unknown]
  - Fatigue [Unknown]
  - Intentional product misuse [Unknown]
  - Ear pain [Unknown]
  - Nausea [Unknown]
  - Red cell distribution width decreased [Unknown]
  - Malaise [Unknown]
  - Abdominal discomfort [Unknown]
  - Throat irritation [Unknown]
  - Cough [Not Recovered/Not Resolved]

NARRATIVE: CASE EVENT DATE: 201607
